FAERS Safety Report 22998038 (Version 2)
Quarter: 2023Q4

REPORT INFORMATION
  Report Type: Report from Study
  Country: CA (occurrence: CA)
  Receive Date: 20230928
  Receipt Date: 20231229
  Transmission Date: 20240110
  Serious: Yes (Other)
  Sender: FDA-Public Use
  Company Number: CA-JNJFOC-20220856896

PATIENT
  Sex: Male

DRUGS (2)
  1. REMICADE [Suspect]
     Active Substance: INFLIXIMAB
     Indication: Crohn^s disease
     Dosage: WEEK 0
     Route: 041
     Dates: start: 20220831
  2. REMICADE [Suspect]
     Active Substance: INFLIXIMAB
     Dosage: 10MG/KG AT WEEK 2 ,6 AND ONCE EVERY 6 WEEKS FOR WEEK 2 FOR TARGETING HIGH DRUG LEVELS?400 MG
     Route: 041

REACTIONS (2)
  - Keratoconus [Unknown]
  - Off label use [Unknown]
